FAERS Safety Report 9107325 (Version 1)
Quarter: 2013Q1

REPORT INFORMATION
  Report Type: Report from Study
  Country: US (occurrence: US)
  Receive Date: 20130221
  Receipt Date: 20130221
  Transmission Date: 20140127
  Serious: Yes (Hospitalization)
  Sender: FDA-Public Use
  Company Number: US-JNJFOC-20130205846

PATIENT
  Age: 50 Year
  Sex: Female
  Weight: 117.94 kg

DRUGS (16)
  1. CISAPRIDE [Suspect]
     Route: 048
  2. CISAPRIDE [Suspect]
     Indication: IMPAIRED GASTRIC EMPTYING
     Route: 048
     Dates: start: 20080703, end: 20130129
  3. TYLENOL [Concomitant]
     Indication: HEADACHE
     Dosage: AS NECESSARY
  4. EXCEDRIN (ACETAMINOPHEN/ASPIRIN/CAFFEINE) [Concomitant]
     Dosage: HAD NOT USED FOR 4 MONTHS
     Route: 065
  5. FERROUS SULFATE [Concomitant]
     Route: 065
  6. FLAXSEED [Concomitant]
     Route: 065
  7. HUMALOG [Concomitant]
     Dosage: 10 UNITS WITH MEALS AS WELL SLIDING SCALE INSULIN
     Route: 065
  8. INDERAL LA [Concomitant]
     Route: 065
  9. LANTUS [Concomitant]
     Dosage: 100 UNITS AT BEDTIME
     Route: 065
  10. LISINOPRIL [Concomitant]
     Indication: HYPERTENSION
     Route: 065
  11. METFORMIN [Concomitant]
     Dosage: 100 MG IN MORNING, 500 MG AT LUNCH AN 1000 MG WITH SUPPER
     Route: 065
  12. OMEPRAZOLE [Concomitant]
     Route: 065
  13. ASPIRIN [Concomitant]
     Route: 048
  14. VITAMIN C [Concomitant]
     Route: 065
  15. VITAMIN D [Concomitant]
     Route: 065
  16. LOVENOX [Concomitant]
     Indication: THROMBOSIS PROPHYLAXIS
     Route: 065

REACTIONS (1)
  - Ventricular tachycardia [Recovered/Resolved]
